FAERS Safety Report 7770692-8 (Version None)
Quarter: 2011Q3

REPORT INFORMATION
  Report Type: 
  Country: None (occurrence: None)
  Receive Date: 20110922
  Receipt Date: 20101027
  Transmission Date: 20111222
  Serious: No
  Sender: FDA-Public Use
  Company Number: US-ASTRAZENECA-2010SE51009

PATIENT
  Age: 38 Year
  Sex: Female
  Weight: 96.6 kg

DRUGS (1)
  1. SEROQUEL [Suspect]
     Indication: BIPOLAR DISORDER
     Dosage: 200 MG AM AND 400 MG HS
     Route: 048
     Dates: start: 20060101, end: 20101024

REACTIONS (3)
  - DRUG DOSE OMISSION [None]
  - FATIGUE [None]
  - FEELING JITTERY [None]
